FAERS Safety Report 4864139-9 (Version None)
Quarter: 2005Q4

REPORT INFORMATION
  Report Type: 
  Country: None (occurrence: None)
  Receive Date: 20051222
  Receipt Date: 20051214
  Transmission Date: 20060501
  Serious: Yes (Hospitalization)
  Sender: FDA-Public Use
  Company Number: FR-GLAXOSMITHKLINE-B0403992A

PATIENT
  Age: 45 Year
  Sex: Male
  Weight: 70 kg

DRUGS (4)
  1. ZIAGEN [Suspect]
     Indication: HIV INFECTION
     Dosage: 300MG PER DAY
     Route: 048
     Dates: start: 20020101, end: 20020326
  2. EPIVIR [Concomitant]
     Indication: HIV INFECTION
     Dosage: 300MG PER DAY
     Route: 048
     Dates: start: 20020101, end: 20020326
  3. VIDEX [Concomitant]
     Indication: HIV INFECTION
     Dosage: 600MG PER DAY
     Route: 048
     Dates: start: 20020101, end: 20020326
  4. KALETRA [Concomitant]
     Indication: HIV INFECTION
     Dosage: 3UNIT TWICE PER DAY
     Route: 048
     Dates: start: 20020101, end: 20020326

REACTIONS (5)
  - COUGH [None]
  - DRUG HYPERSENSITIVITY [None]
  - DYSPNOEA [None]
  - MYALGIA [None]
  - PYREXIA [None]
